FAERS Safety Report 11498173 (Version 1)
Quarter: 2015Q3

REPORT INFORMATION
  Report Type: Report from Study
  Country: DE (occurrence: CO)
  Receive Date: 20150911
  Receipt Date: 20150911
  Transmission Date: 20151125
  Serious: Yes (Other)
  Sender: FDA-Public Use
  Company Number: DE-ACTELION-A-US2015-123827

PATIENT
  Age: 54 Year
  Sex: Female

DRUGS (3)
  1. SERETIDE [Concomitant]
     Active Substance: FLUTICASONE FUROATE\SALMETEROL XINAFOATE
  2. SILDENAFIL. [Concomitant]
     Active Substance: SILDENAFIL
  3. VENTAVIS [Suspect]
     Active Substance: ILOPROST
     Indication: PRODUCT USED FOR UNKNOWN INDICATION
     Dosage: UNK
     Route: 055
     Dates: start: 20101229

REACTIONS (6)
  - Oxygen saturation decreased [Unknown]
  - Dizziness [Unknown]
  - Muscular weakness [Unknown]
  - Product use issue [Unknown]
  - Emotional disorder [Unknown]
  - Cyanosis [Unknown]
